FAERS Safety Report 17412335 (Version 1)
Quarter: 2020Q1

REPORT INFORMATION
  Report Type: Spontaneous
  Country: US (occurrence: US)
  Receive Date: 20200212
  Receipt Date: 20200212
  Transmission Date: 20200409
  Serious: No
  Sender: FDA-Public Use
  Company Number: None

PATIENT
  Age: 44 Year
  Sex: Female
  Weight: 67.5 kg

DRUGS (2)
  1. OXYCODONE [Suspect]
     Active Substance: OXYCODONE
     Indication: FIBROMYALGIA
     Dosage: ?          QUANTITY:120 TABLET(S);?
     Route: 048
     Dates: start: 20190901, end: 20190903
  2. OXYCODONE [Suspect]
     Active Substance: OXYCODONE
     Indication: PAIN
     Dosage: ?          QUANTITY:120 TABLET(S);?
     Route: 048
     Dates: start: 20190901, end: 20190903

REACTIONS (5)
  - Pain [None]
  - Heart rate increased [None]
  - Inadequate analgesia [None]
  - Withdrawal syndrome [None]
  - Product substitution issue [None]
